FAERS Safety Report 10145933 (Version 1)
Quarter: 2014Q2

REPORT INFORMATION
  Report Type: Spontaneous
  Country: US (occurrence: US)
  Receive Date: 20140501
  Receipt Date: 20140501
  Transmission Date: 20141212
  Serious: No
  Sender: FDA-Public Use
  Company Number: US-ABBVIE-14P-163-1199777-00

PATIENT
  Age: 77 Year
  Sex: Female
  Weight: 79 kg

DRUGS (7)
  1. CREON [Suspect]
     Indication: PANCREATITIS CHRONIC
     Dosage: 1 CREON CAPSULE WITH EACH MEAL
     Route: 048
     Dates: start: 201306
  2. CARVEDILOL [Concomitant]
     Indication: HYPERTENSION
  3. BENAZEPRIL [Concomitant]
     Indication: HYPERTENSION
  4. DILTIAZEM [Concomitant]
     Indication: HYPERTENSION
  5. PRAVASTATIN [Concomitant]
     Indication: BLOOD CHOLESTEROL INCREASED
  6. HUMALOG [Concomitant]
     Indication: TYPE 2 DIABETES MELLITUS
  7. LANTUS [Concomitant]
     Indication: TYPE 2 DIABETES MELLITUS

REACTIONS (4)
  - Weight increased [Not Recovered/Not Resolved]
  - Arthralgia [Not Recovered/Not Resolved]
  - Arthralgia [Not Recovered/Not Resolved]
  - Pain in extremity [Not Recovered/Not Resolved]
